FAERS Safety Report 5048834-7 (Version None)
Quarter: 2006Q3

REPORT INFORMATION
  Report Type: 
  Country: None (occurrence: None)
  Receive Date: 20060706
  Receipt Date: 20060626
  Transmission Date: 20061208
  Serious: Yes (Death, Life-Threatening, Hospitalization)
  Sender: FDA-Public Use
  Company Number: 213108

PATIENT
  Age: 47 Year
  Sex: Female

DRUGS (4)
  1. MABTHERA             (RITUXIMAB) [Suspect]
     Indication: LYMPHOMA
     Dosage: 375 AUG/M2, INTRAVENOUS
     Route: 042
     Dates: start: 20041125, end: 20041125
  2. FLUCONAZOLE [Concomitant]
  3. ACYCLOVIR SODIUM [Concomitant]
  4. SULFAMETHOXAZOLE + TRIMETHOPRIM [Concomitant]

REACTIONS (6)
  - HAEMOGLOBIN DECREASED [None]
  - HYPOXIA [None]
  - INTERNATIONAL NORMALISED RATIO INCREASED [None]
  - LUNG CONSOLIDATION [None]
  - PNEUMONIA [None]
  - WHITE BLOOD CELL COUNT DECREASED [None]
